FAERS Safety Report 9131805 (Version 3)
Quarter: 2013Q1

REPORT INFORMATION
  Report Type: Spontaneous
  Country: US (occurrence: US)
  Receive Date: 20130301
  Receipt Date: 20130329
  Transmission Date: 20140127
  Serious: Yes (Disabling, Other)
  Sender: FDA-Public Use
  Company Number: US-JNJFOC-20130213685

PATIENT
  Sex: Female
  Weight: 69.85 kg

DRUGS (3)
  1. REMICADE [Suspect]
     Indication: CROHN^S DISEASE
     Route: 042
     Dates: start: 199906, end: 2011
  2. MORPHINE [Concomitant]
     Indication: PAIN
     Route: 065
  3. MORPHINE [Concomitant]
     Indication: PAIN
     Route: 065

REACTIONS (7)
  - Depression [Unknown]
  - Arthropathy [Unknown]
  - Anxiety [Unknown]
  - Uterine polyp [Not Recovered/Not Resolved]
  - Lupus-like syndrome [Not Recovered/Not Resolved]
  - Urinary bladder polyp [Not Recovered/Not Resolved]
  - Adverse event [Unknown]
